FAERS Safety Report 7531123-6 (Version None)
Quarter: 2011Q2

REPORT INFORMATION
  Report Type: 
  Country: None (occurrence: None)
  Receive Date: 20110526
  Receipt Date: 20110510
  Transmission Date: 20111010
  Serious: Yes (Hospitalization)
  Sender: FDA-Public Use
  Company Number: DSA_46767_2011

PATIENT
  Age: 89 Year
  Sex: Female

DRUGS (2)
  1. SECTRAL [Suspect]
     Indication: PRODUCT USED FOR UNKNOWN INDICATION
     Dosage: 200 MG QD, ORAL, HALF OF A TABLET ORAL
     Route: 048
  2. ENALAPRIL MALEATE [Suspect]
     Indication: HYPERTENSION
     Dosage: 0.5 MG, QD, ORAL
     Route: 048

REACTIONS (6)
  - DISCOMFORT [None]
  - LOSS OF CONSCIOUSNESS [None]
  - ATRIOVENTRICULAR BLOCK FIRST DEGREE [None]
  - ELECTROCARDIOGRAM QRS COMPLEX SHORTENED [None]
  - FALL [None]
  - ORTHOSTATIC HYPOTENSION [None]
